FAERS Safety Report 5051181-0 (Version None)
Quarter: 2006Q3

REPORT INFORMATION
  Report Type: 
  Country: None (occurrence: None)
  Receive Date: 20060714
  Receipt Date: 20060706
  Transmission Date: 20061208
  Serious: Yes (Hospitalization)
  Sender: FDA-Public Use
  Company Number: AU-ROCHE-454207

PATIENT
  Age: 35 Year
  Sex: Female
  Weight: 144 kg

DRUGS (1)
  1. XENICAL [Suspect]
     Indication: OBESITY
     Dosage: 3 DOSE FORM UNSPECIFIED DAILY.
     Route: 048
     Dates: start: 20060315, end: 20060320

REACTIONS (3)
  - ABDOMINAL PAIN [None]
  - DIARRHOEA [None]
  - PYREXIA [None]
